FAERS Safety Report 8763732 (Version 2)
Quarter: 2012Q4

REPORT INFORMATION
  Report Type: Spontaneous
  Country: US (occurrence: None)
  Receive Date: 20120828
  Receipt Date: 20120830
  Transmission Date: 20130627
  Serious: Yes (Hospitalization)
  Sender: FDA-Public Use
  Company Number: 2012AP002585

PATIENT
  Age: 53 Year
  Sex: Female

DRUGS (7)
  1. PAROXETINE HCL TABLETS [Suspect]
     Indication: DRUG USE FOR UNKNOWN INDICATION
  2. FAMOTIDINE [Suspect]
  3. HYDROXYZINE [Suspect]
     Indication: URTICARIA
  4. HYDROCODONE [Suspect]
     Indication: DRUG USE FOR UNKNOWN INDICATION
  5. IBUPROFEN [Suspect]
  6. VERAPAMIL HYDROCHLORIDE [Suspect]
  7. PREDNISONE [Suspect]

REACTIONS (11)
  - Mental status changes [None]
  - Drug interaction [None]
  - Asthenia [None]
  - Confusional state [None]
  - Dizziness [None]
  - Somnolence [None]
  - Urticaria [None]
  - Muscular weakness [None]
  - Drug clearance decreased [None]
  - Overdose [None]
  - Dysstasia [None]
